FAERS Safety Report 9384032 (Version 2)
Quarter: 2013Q3

REPORT INFORMATION
  Report Type: Spontaneous
  Country: US (occurrence: US)
  Receive Date: 20130705
  Receipt Date: 20130723
  Transmission Date: 20140515
  Serious: Yes (Life-Threatening, Hospitalization, Other)
  Sender: FDA-Public Use
  Company Number: US-ROCHE-1245282

PATIENT
  Age: 45 Year
  Sex: Female
  Weight: 76.2 kg

DRUGS (1)
  1. XOLAIR [Suspect]
     Indication: ASTHMA
     Route: 058
     Dates: start: 20121004, end: 20130705

REACTIONS (4)
  - Bronchospasm [Recovered/Resolved]
  - Dyspnoea [Unknown]
  - Throat tightness [Unknown]
  - Peak expiratory flow rate decreased [Unknown]
